FAERS Safety Report 10262088 (Version 1)
Quarter: 2014Q2

REPORT INFORMATION
  Report Type: Spontaneous
  Country: US (occurrence: US)
  Receive Date: 20140626
  Receipt Date: 20140626
  Transmission Date: 20141212
  Serious: Yes (Death, Other)
  Sender: FDA-Public Use
  Company Number: US-GILEAD-2014-0106347

PATIENT
  Age: 61 Year
  Sex: Male
  Weight: 75.28 kg

DRUGS (10)
  1. SOVALDI [Suspect]
     Indication: HEPATITIS C
     Dosage: 400 MG, QD
     Route: 048
     Dates: start: 20140613, end: 20140616
  2. RIBAPAK [Suspect]
     Indication: HEPATITIS C
     Dosage: 600 MG, QD
     Route: 048
     Dates: start: 20140613, end: 20140616
  3. ALDACTONE                          /00006201/ [Concomitant]
  4. LASIX                              /00032601/ [Concomitant]
  5. NEOMYCIN SULFATE [Concomitant]
  6. LACTULOSE [Concomitant]
  7. ZOFRAN                             /00955301/ [Concomitant]
  8. DIFLUCAN [Concomitant]
  9. BUPROPION HCL [Concomitant]
  10. NEXIUM                             /01479302/ [Concomitant]

REACTIONS (3)
  - Death [Fatal]
  - Hepatic cirrhosis [Unknown]
  - Hepatitis C [Unknown]
